FAERS Safety Report 6591314-8 (Version None)
Quarter: 2010Q1

REPORT INFORMATION
  Report Type: 
  Country: None (occurrence: None)
  Receive Date: 20100219
  Receipt Date: 20100208
  Transmission Date: 20100710
  Serious: Yes (Other)
  Sender: FDA-Public Use
  Company Number: BR-PFIZER INC-2010015961

PATIENT
  Age: 66 Year
  Sex: Male
  Weight: 62 kg

DRUGS (8)
  1. FRONTAL [Suspect]
     Indication: ANXIETY
     Dosage: 1 MG, 1X/DAY
     Route: 048
     Dates: start: 20100101
  2. FRONTAL [Suspect]
     Indication: DEPRESSION
     Dosage: 0.25 MG, 1X/DAY
     Route: 048
     Dates: start: 20100101, end: 20100101
  3. ALPRAZOLAM [Suspect]
     Indication: ANXIETY
     Dosage: UNK
     Dates: start: 20090101
  4. DIAZEPAM [Suspect]
     Indication: ANXIETY
     Dosage: UNK
  5. DIAZEPAM [Suspect]
     Indication: RELAXATION THERAPY
     Dosage: 2X/DAY
     Dates: start: 20100208
  6. DIAZEPAM [Suspect]
     Indication: SLEEP DISORDER
  7. SELOZOK [Concomitant]
     Indication: HYPERTENSION
     Dosage: 50 MG, UNK
  8. HYDROCHLOROTHIAZIDE [Concomitant]
     Indication: HYPERTENSION

REACTIONS (9)
  - ANXIETY [None]
  - ASTHENIA [None]
  - BLOOD CHOLESTEROL INCREASED [None]
  - CHILLS [None]
  - CONFUSIONAL STATE [None]
  - DRUG INEFFECTIVE [None]
  - HYPERTENSION [None]
  - INSOMNIA [None]
  - MUSCLE RIGIDITY [None]
